FAERS Safety Report 14674838 (Version 2)
Quarter: 2018Q2

REPORT INFORMATION
  Report Type: Spontaneous
  Country: JP (occurrence: JP)
  Receive Date: 20180323
  Receipt Date: 20180402
  Transmission Date: 20180711
  Serious: Yes (Hospitalization, Other)
  Sender: FDA-Public Use
  Company Number: JP-GLAXOSMITHKLINE-JP2018JPN046026

PATIENT
  Age: 7 Decade
  Sex: Female

DRUGS (1)
  1. FLOLAN [Suspect]
     Active Substance: EPOPROSTENOL SODIUM
     Indication: PULMONARY ARTERIAL HYPERTENSION
     Dosage: UNK
     Route: 042

REACTIONS (5)
  - Platelet count decreased [Unknown]
  - Adenocarcinoma gastric [Recovering/Resolving]
  - Haemorrhage [Recovering/Resolving]
  - Anaemia [Unknown]
  - Haematemesis [Recovering/Resolving]
